FAERS Safety Report 25790057 (Version 1)
Quarter: 2025Q3

REPORT INFORMATION
  Report Type: Spontaneous
  Country: US (occurrence: US)
  Receive Date: 20250911
  Receipt Date: 20250911
  Transmission Date: 20251021
  Serious: No
  Sender: APOTEX
  Company Number: US-APOTEX-2025AP029668

PATIENT
  Age: 61 Year
  Sex: Female

DRUGS (1)
  1. LITHIUM [Suspect]
     Active Substance: LITHIUM
     Indication: Depression
     Route: 065

REACTIONS (3)
  - Vestibular nystagmus [Recovering/Resolving]
  - Oscillopsia [Recovering/Resolving]
  - Condition aggravated [Recovering/Resolving]
